FAERS Safety Report 6239955-1 (Version None)
Quarter: 2009Q2

REPORT INFORMATION
  Report Type: 
  Country: None (occurrence: None)
  Receive Date: 20090623
  Receipt Date: 20090618
  Transmission Date: 20091009
  Serious: Yes (Death, Hospitalization, Other)
  Sender: FDA-Public Use
  Company Number: IN-CELGENEUS-THAIN200700266

PATIENT
  Sex: Male

DRUGS (11)
  1. THALIDOMIDE [Suspect]
     Indication: MULTIPLE MYELOMA
     Route: 048
     Dates: start: 20070625, end: 20071025
  2. ELTROXIN [Concomitant]
     Indication: HYPOTHYROIDISM
     Route: 048
  3. GABATEN [Concomitant]
     Indication: PROPHYLAXIS
     Route: 048
  4. TRYPTOMER [Concomitant]
     Indication: PAIN
     Route: 048
     Dates: end: 20070808
  5. TRYPTOMER [Concomitant]
     Route: 048
     Dates: start: 20070809
  6. ACITROM [Concomitant]
     Dates: start: 20070809
  7. DOMSTAL [Concomitant]
     Route: 048
     Dates: start: 20070809
  8. SHELCAL [Concomitant]
     Indication: ENTERAL NUTRITION
     Route: 048
     Dates: start: 20070810
  9. PRACTOCLYS ENEMA [Concomitant]
     Indication: CONSTIPATION
     Route: 054
     Dates: start: 20070813, end: 20070813
  10. ENOXAPARIN SODIUM [Concomitant]
     Route: 058
     Dates: start: 20070813
  11. ZOLDANAT [Concomitant]
     Indication: BONE PAIN
     Route: 051
     Dates: start: 20070809

REACTIONS (4)
  - BACK PAIN [None]
  - CARDIOPULMONARY FAILURE [None]
  - SEPSIS [None]
  - SOMNOLENCE [None]
